FAERS Safety Report 11444871 (Version 2)
Quarter: 2015Q4

REPORT INFORMATION
  Report Type: Other
  Country: None (occurrence: IN)
  Receive Date: 20150902
  Receipt Date: 20151006
  Transmission Date: 20160304
  Serious: Yes (Other)
  Sender: FDA-Public Use
  Company Number: IN-MERCK KGAA-1041583

PATIENT

DRUGS (1)
  1. NOVOTHYROX [Suspect]
     Active Substance: LEVOTHYROXINE SODIUM

REACTIONS (3)
  - Compartment syndrome [None]
  - Rhabdomyolysis [None]
  - Peroneal nerve palsy [None]
